FAERS Safety Report 6145468-8 (Version None)
Quarter: 2009Q2

REPORT INFORMATION
  Report Type: 
  Country: None (occurrence: None)
  Receive Date: 20090406
  Receipt Date: 20090325
  Transmission Date: 20091009
  Serious: Yes (Hospitalization, Disabling, Other)
  Sender: FDA-Public Use
  Company Number: US-PFIZER INC-2008047705

PATIENT
  Age: 57 Year
  Sex: Male
  Weight: 95.3 kg

DRUGS (1)
  1. CHANTIX [Suspect]
     Dates: start: 20070601

REACTIONS (5)
  - BENIGN INTRACRANIAL HYPERTENSION [None]
  - CSF TEST ABNORMAL [None]
  - DIPLOPIA [None]
  - HEADACHE [None]
  - VITH NERVE PARALYSIS [None]
